FAERS Safety Report 8367568-4 (Version None)
Quarter: 2012Q1

REPORT INFORMATION
  Report Type: 
  Country: None (occurrence: None)
  Receive Date: 20120323
  Receipt Date: 20110825
  Transmission Date: 20120608
  Serious: Yes (Other)
  Sender: FDA-Public Use
  Company Number: 163-21880-11080047

PATIENT
  Age: 86 Year
  Sex: Male

DRUGS (5)
  1. CARDIUM (DILTIAZEM HYDROCHLORIDE) [Concomitant]
  2. LISINOPRIL [Concomitant]
  3. REVLIMID [Suspect]
     Indication: MULTIPLE MYELOMA
     Dosage: 10 MG, 1 IN 1 D, PO
     Route: 048
     Dates: start: 20110629, end: 20110710
  4. VALACYCLOVIR [Concomitant]
  5. ARICEPT [Concomitant]

REACTIONS (3)
  - DECREASED APPETITE [None]
  - HERPES ZOSTER [None]
  - SPINAL CORD COMPRESSION [None]
